FAERS Safety Report 9136299 (Version 1)
Quarter: 2013Q1

REPORT INFORMATION
  Report Type: Spontaneous
  Country: None (occurrence: US)
  Receive Date: 20130304
  Receipt Date: 20130304
  Transmission Date: 20140127
  Serious: No
  Sender: FDA-Public Use
  Company Number: US-ABBOTT-12P-163-0980682-00

PATIENT
  Sex: Male
  Weight: 86.26 kg

DRUGS (7)
  1. ANDROGEL [Suspect]
     Indication: BLOOD TESTOSTERONE DECREASED
     Dosage: 5 GRAM PACKETS
     Dates: start: 201206, end: 201208
  2. ANDROGEL [Suspect]
     Dosage: 5 GRAMS PACKETS
     Route: 061
     Dates: start: 201208
  3. LYRICA [Suspect]
     Indication: PRODUCT USED FOR UNKNOWN INDICATION
     Dates: start: 201205, end: 201206
  4. PERCOCET [Concomitant]
     Indication: PAIN
  5. CELEBREX [Concomitant]
     Indication: ARTHRITIS
  6. BABY ASPIRIN [Concomitant]
     Indication: ISCHAEMIC HEART DISEASE PROPHYLAXIS
  7. VITAMINS [Concomitant]
     Indication: VITAMIN SUPPLEMENTATION

REACTIONS (3)
  - Drug dose omission [Unknown]
  - Blood testosterone decreased [Unknown]
  - Weight increased [Not Recovered/Not Resolved]
